FAERS Safety Report 11075466 (Version 1)
Quarter: 2015Q2

REPORT INFORMATION
  Report Type: Spontaneous
  Country: US (occurrence: US)
  Receive Date: 20150429
  Receipt Date: 20150429
  Transmission Date: 20150821
  Serious: Yes (Death, Other)
  Sender: FDA-Public Use
  Company Number: US-ASTRAZENECA-2013SE47921

PATIENT
  Age: 20850 Day
  Sex: Male
  Weight: 92.8 kg

DRUGS (46)
  1. BYETTA [Suspect]
     Active Substance: EXENATIDE
     Indication: DIABETES MELLITUS
     Route: 065
     Dates: start: 200902, end: 201201
  2. JANUVIA [Suspect]
     Active Substance: SITAGLIPTIN PHOSPHATE
     Indication: DIABETES MELLITUS
     Route: 065
     Dates: start: 201007, end: 201201
  3. JANUMET [Suspect]
     Active Substance: METFORMIN HYDROCHLORIDE\SITAGLIPTIN PHOSPHATE
     Indication: DIABETES MELLITUS
     Route: 065
     Dates: start: 201007, end: 201201
  4. GLUCOPHAGE [Concomitant]
     Active Substance: METFORMIN HYDROCHLORIDE
     Dates: start: 20021116
  5. ZOCOR [Concomitant]
     Active Substance: SIMVASTATIN
     Dates: start: 20060313
  6. VIAGRA [Concomitant]
     Active Substance: SILDENAFIL CITRATE
     Dates: start: 20001020
  7. JANUMET [Suspect]
     Active Substance: METFORMIN HYDROCHLORIDE\SITAGLIPTIN PHOSPHATE
     Indication: DIABETES MELLITUS
     Dosage: 50- 1000 MG
     Route: 048
     Dates: start: 20100716
  8. LEVAQUIN [Concomitant]
     Active Substance: LEVOFLOXACIN
     Dates: start: 20040422
  9. PROVIGIL [Concomitant]
     Active Substance: MODAFINIL
     Dates: start: 20040601
  10. VYTORIN [Concomitant]
     Active Substance: EZETIMIBE\SIMVASTATIN
     Dosage: 10-20
     Dates: start: 20080531
  11. PANTOPRAZOLE SODIUM [Concomitant]
     Dates: start: 20130320
  12. AVANDIA [Concomitant]
     Active Substance: ROSIGLITAZONE MALEATE
     Route: 048
     Dates: start: 20020808
  13. PENICILLIN VK [Concomitant]
     Active Substance: PENICILLIN V POTASSIUM
     Dates: start: 20030425
  14. NITROQUICK [Concomitant]
     Active Substance: NITROGLYCERIN
     Dates: start: 20050927
  15. BYETTA [Suspect]
     Active Substance: EXENATIDE
     Indication: DIABETES MELLITUS
     Route: 065
     Dates: start: 20120112
  16. METOPROLOL [Concomitant]
     Active Substance: METOPROLOL
     Dates: start: 20050916
  17. PLAVIX [Concomitant]
     Active Substance: CLOPIDOGREL BISULFATE
     Dates: start: 20050927
  18. LANTUS [Concomitant]
     Active Substance: INSULIN GLARGINE
     Dosage: 100 UNITS/ML
     Dates: start: 20070324
  19. METHAZOLAMIDE. [Concomitant]
     Active Substance: METHAZOLAMIDE
     Dates: start: 20101209
  20. METOCLOPRAMIDE. [Concomitant]
     Active Substance: METOCLOPRAMIDE
     Dates: start: 20130607
  21. BAYCOL [Concomitant]
     Active Substance: CERIVASTATIN SODIUM
     Dates: start: 20000408
  22. FOLFIRINOX [Concomitant]
     Active Substance: FLUOROURACIL\IRINOTECAN\LEUCOVORIN\OXALIPLATIN
     Dates: start: 20130528
  23. METOPROLOL [Concomitant]
     Active Substance: METOPROLOL
     Dates: start: 20050926
  24. ACEON [Concomitant]
     Active Substance: PERINDOPRIL ERBUMINE
     Dates: start: 20021116
  25. AMBIEN [Concomitant]
     Active Substance: ZOLPIDEM TARTRATE
     Dates: start: 20040325
  26. HYDROCODONE [Concomitant]
     Active Substance: HYDROCODONE
     Dates: start: 20040422
  27. GLYBURIDE. [Concomitant]
     Active Substance: GLYBURIDE
     Dates: start: 20051122
  28. CRESTOR [Concomitant]
     Active Substance: ROSUVASTATIN CALCIUM
     Dates: start: 20100617
  29. EFFIENT [Concomitant]
     Active Substance: PRASUGREL HYDROCHLORIDE
     Dates: start: 20101209
  30. JANUVIA [Suspect]
     Active Substance: SITAGLIPTIN PHOSPHATE
     Indication: DIABETES MELLITUS
     Route: 048
     Dates: start: 20100713
  31. LIPITOR [Concomitant]
     Active Substance: ATORVASTATIN CALCIUM
     Dates: start: 20050926
  32. LOTENSIN [Concomitant]
     Active Substance: BENAZEPRIL HYDROCHLORIDE
     Route: 048
     Dates: start: 20050926
  33. BENAZEPRIL [Concomitant]
     Active Substance: BENAZEPRIL\BENAZEPRIL HYDROCHLORIDE
     Dates: start: 20050927
  34. ACTOPLUS MET [Concomitant]
     Active Substance: METFORMIN HYDROCHLORIDE\PIOGLITAZONE HYDROCHLORIDE
     Dosage: 15 MG/850 MG
     Dates: start: 20061127
  35. BYETTA [Suspect]
     Active Substance: EXENATIDE
     Indication: DIABETES MELLITUS
     Route: 065
     Dates: start: 20090203
  36. LIPITOR [Concomitant]
     Active Substance: ATORVASTATIN CALCIUM
     Dates: start: 20030410
  37. AVANDIA [Concomitant]
     Active Substance: ROSIGLITAZONE MALEATE
     Route: 048
     Dates: start: 20050926
  38. ABILIFY [Concomitant]
     Active Substance: ARIPIPRAZOLE
     Dates: start: 20040325
  39. NAPROXEN. [Concomitant]
     Active Substance: NAPROXEN
     Dates: start: 20040708
  40. ATACAND [Concomitant]
     Active Substance: CANDESARTAN CILEXETIL
     Dates: start: 20000408
  41. FOLFOX [Concomitant]
     Active Substance: FLUOROURACIL\LEUCOVORIN CALCIUM\OXALIPLATIN
     Dates: start: 20130528
  42. STARLIX [Concomitant]
     Active Substance: NATEGLINIDE
     Dates: start: 20020815
  43. EFFEXOR [Concomitant]
     Active Substance: VENLAFAXINE HYDROCHLORIDE
     Dates: start: 20040325
  44. PREDNISONE. [Concomitant]
     Active Substance: PREDNISONE
     Dates: start: 20070404
  45. ONDANSETRON HCL [Concomitant]
     Active Substance: ONDANSETRON HYDROCHLORIDE
     Dates: start: 20130121
  46. GEMZAR [Concomitant]
     Active Substance: GEMCITABINE HYDROCHLORIDE
     Dates: start: 20130528

REACTIONS (2)
  - Pancreatic carcinoma metastatic [Fatal]
  - Metastases to liver [Unknown]

NARRATIVE: CASE EVENT DATE: 20121223
